FAERS Safety Report 14492366 (Version 1)
Quarter: 2018Q1

REPORT INFORMATION
  Report Type: Spontaneous
  Country: US (occurrence: US)
  Receive Date: 20180206
  Receipt Date: 20180206
  Transmission Date: 20180509
  Serious: Yes (Other)
  Sender: FDA-Public Use
  Company Number: US-OTSUKA-2018_003015

PATIENT
  Age: 69 Year
  Sex: Male

DRUGS (1)
  1. DACOGEN [Suspect]
     Active Substance: DECITABINE
     Indication: ACUTE MYELOID LEUKAEMIA
     Dosage: 20 MG/M2, TEN-DAY COURSE EVERY TWENTY-EIGHT DAYS
     Route: 065

REACTIONS (2)
  - Left ventricular dysfunction [Unknown]
  - Cardiomyopathy [Unknown]
